FAERS Safety Report 13685271 (Version 2)
Quarter: 2017Q3

REPORT INFORMATION
  Report Type: Spontaneous
  Country: JP (occurrence: JP)
  Receive Date: 20170623
  Receipt Date: 20170825
  Transmission Date: 20171127
  Serious: Yes (Hospitalization, Other)
  Sender: FDA-Public Use
  Company Number: JP-GLAXOSMITHKLINE-JP2017JPN094141

PATIENT
  Age: 79 Year
  Sex: Female

DRUGS (3)
  1. VALTREX [Suspect]
     Active Substance: VALACYCLOVIR HYDROCHLORIDE
     Indication: HERPES ZOSTER
     Dosage: 3000 MG, 1D
     Route: 048
  2. LOXOPROFEN [Suspect]
     Active Substance: LOXOPROFEN
     Dosage: 180 MG, 1D
     Route: 048
  3. METHOTREXATE. [Concomitant]
     Active Substance: METHOTREXATE
     Indication: RHEUMATOID ARTHRITIS
     Dosage: 4 MG, WE

REACTIONS (4)
  - Acute kidney injury [Recovering/Resolving]
  - Altered state of consciousness [Recovering/Resolving]
  - Renal tubular disorder [Recovering/Resolving]
  - Rash [Unknown]
